FAERS Safety Report 4726100-4 (Version None)
Quarter: 2005Q3

REPORT INFORMATION
  Report Type: 
  Country: None (occurrence: None)
  Receive Date: 20050725
  Receipt Date: 20050711
  Transmission Date: 20060218
  Serious: Yes (Hospitalization)
  Sender: FDA-Public Use
  Company Number: 2005099492

PATIENT
  Age: 24 Year
  Sex: Female

DRUGS (4)
  1. PREDNISONE [Suspect]
     Indication: BRONCHITIS ACUTE
     Dosage: ORAL
     Route: 048
     Dates: start: 20050410, end: 20050415
  2. CEFPODOXIME PROXETIL [Suspect]
     Indication: BRONCHITIS ACUTE
     Dosage: ORAL
     Route: 048
     Dates: start: 20050410, end: 20050415
  3. PNEUMOREL(FENSPIRIDE HYDROCHLORIDE) [Suspect]
     Indication: BRONCHITIS ACUTE
     Dosage: ORAL
     Route: 048
     Dates: start: 20050410, end: 20050415
  4. GYNO-PEVARYL (ECONAZOLE NITRATE [Suspect]
     Indication: VULVOVAGINAL MYCOTIC INFECTION
     Dosage: VAGINAL
     Route: 067
     Dates: start: 20050415, end: 20050423

REACTIONS (3)
  - CYTOLYTIC HEPATITIS [None]
  - DIABETES MELLITUS [None]
  - VULVOVAGINAL MYCOTIC INFECTION [None]
